FAERS Safety Report 5356826-3 (Version None)
Quarter: 2007Q2

REPORT INFORMATION
  Report Type: 
  Country: None (occurrence: None)
  Receive Date: 20070614
  Receipt Date: 20061120
  Transmission Date: 20071010
  Serious: No
  Sender: FDA-Public Use
  Company Number: US-ASTRAZENECA-2006UW25618

PATIENT
  Age: 81 Year
  Sex: Female
  Weight: 77.1 kg

DRUGS (4)
  1. ATACAND [Suspect]
     Indication: HYPERTENSION
     Route: 048
  2. ATACAND [Suspect]
     Route: 048
  3. NORVASC [Concomitant]
  4. LORAZEPAM [Concomitant]

REACTIONS (1)
  - INSOMNIA [None]
